FAERS Safety Report 21575706 (Version 1)
Quarter: 2022Q4

REPORT INFORMATION
  Report Type: Report from Study
  Country: US (occurrence: US)
  Receive Date: 20221110
  Receipt Date: 20221110
  Transmission Date: 20230112
  Serious: Yes (Hospitalization)
  Sender: FDA-Public Use
  Company Number: US-ABBVIE-4194121

PATIENT
  Sex: Female

DRUGS (1)
  1. RINVOQ [Suspect]
     Active Substance: UPADACITINIB
     Indication: Product used for unknown indication
     Route: 048
     Dates: start: 2022, end: 20221106

REACTIONS (3)
  - Localised infection [Not Recovered/Not Resolved]
  - Peripheral swelling [Unknown]
  - Erythema [Unknown]

NARRATIVE: CASE EVENT DATE: 20220101
